FAERS Safety Report 23653503 (Version 2)
Quarter: 2024Q1

REPORT INFORMATION
  Report Type: Spontaneous
  Country: US (occurrence: US)
  Receive Date: 20240320
  Receipt Date: 20240321
  Transmission Date: 20240409
  Serious: No
  Sender: FDA-Public Use
  Company Number: US-PFIZER INC-202400066867

PATIENT
  Age: 67 Year
  Sex: Female

DRUGS (2)
  1. VELSIPITY [Suspect]
     Active Substance: ETRASIMOD ARGININE
     Dosage: 2 MG
  2. VITAMIN C [Suspect]
     Active Substance: ASCORBIC ACID
     Dosage: UNK

REACTIONS (3)
  - Diarrhoea [Unknown]
  - Drug hypersensitivity [Unknown]
  - Osteoporosis [Unknown]
